FAERS Safety Report 6790516-5 (Version None)
Quarter: 2010Q2

REPORT INFORMATION
  Report Type: 
  Country: None (occurrence: None)
  Receive Date: 20100624
  Receipt Date: 20100617
  Transmission Date: 20101027
  Serious: Yes (Other)
  Sender: FDA-Public Use
  Company Number: GB-ROCHE-709833

PATIENT
  Age: 38 Year
  Sex: Female

DRUGS (3)
  1. XENICAL [Suspect]
     Indication: DRUG USE FOR UNKNOWN INDICATION
     Route: 065
  2. MICRONOR [Interacting]
     Indication: DRUG USE FOR UNKNOWN INDICATION
     Route: 065
  3. RAMIPRIL [Concomitant]
     Route: 048
     Dates: start: 20090319

REACTIONS (2)
  - DRUG INTERACTION [None]
  - PREGNANCY ON CONTRACEPTIVE [None]
